FAERS Safety Report 6679307-3 (Version None)
Quarter: 2010Q2

REPORT INFORMATION
  Report Type: 
  Country: None (occurrence: None)
  Receive Date: 20100408
  Receipt Date: 20090714
  Transmission Date: 20101027
  Serious: No
  Sender: FDA-Public Use
  Company Number: 2009-00463

PATIENT
  Age: 47 Year
  Sex: Female
  Weight: 56.6996 kg

DRUGS (6)
  1. ZICAM COLD REMEDY NASAL GEL [Suspect]
     Dosage: SPORADIC - END OF COLD, END OF FEB/MAR 2010
  2. MULTI-VITAMIN [Concomitant]
  3. VITAMIN C [Concomitant]
  4. FISH OIL [Concomitant]
  5. VITAMIN D [Concomitant]
  6. FOLIC ACID [Concomitant]

REACTIONS (2)
  - AGEUSIA [None]
  - ANOSMIA [None]
